FAERS Safety Report 4465030-2 (Version None)
Quarter: 2004Q4

REPORT INFORMATION
  Report Type: 
  Country: None (occurrence: None)
  Receive Date: 20041004
  Receipt Date: 20040922
  Transmission Date: 20050328
  Serious: Yes (Hospitalization)
  Sender: FDA-Public Use
  Company Number: US-ROCHE-381389

PATIENT
  Age: 42 Year
  Sex: Female

DRUGS (4)
  1. PEGASYS [Suspect]
     Indication: HEPATITIS C
     Route: 058
     Dates: start: 20040615, end: 20040813
  2. PEGASYS [Suspect]
     Route: 058
     Dates: start: 20040827
  3. COPEGUS [Suspect]
     Indication: HEPATITIS C
     Route: 048
     Dates: start: 20040615, end: 20040813
  4. COPEGUS [Suspect]
     Route: 048
     Dates: start: 20040827

REACTIONS (6)
  - CONDITION AGGRAVATED [None]
  - PLATELET COUNT DECREASED [None]
  - RED BLOOD CELL COUNT DECREASED [None]
  - VAGINAL HAEMORRHAGE [None]
  - VIRAL LOAD INCREASED [None]
  - WHITE BLOOD CELL COUNT DECREASED [None]
